FAERS Safety Report 7528883-7 (Version None)
Quarter: 2011Q2

REPORT INFORMATION
  Report Type: 
  Country: None (occurrence: None)
  Receive Date: 20110520
  Receipt Date: 20110121
  Transmission Date: 20111010
  Serious: No
  Sender: FDA-Public Use
  Company Number: 015773

PATIENT

DRUGS (1)
  1. LACOSAMIDE [Suspect]
     Dates: start: 20090601, end: 20090901

REACTIONS (1)
  - FATIGUE [None]
